FAERS Safety Report 7520850-2 (Version None)
Quarter: 2011Q2

REPORT INFORMATION
  Report Type: 
  Country: None (occurrence: None)
  Receive Date: 20110603
  Receipt Date: 20100914
  Transmission Date: 20111010
  Serious: Yes (Hospitalization)
  Sender: FDA-Public Use
  Company Number: US-BAYER-201018779NA

PATIENT
  Age: 61 Year
  Sex: Female
  Weight: 150 kg

DRUGS (16)
  1. DOCUSATE SODIUM [Concomitant]
  2. DROSPIRENONE AND ETHINYL ESTRADIOL [Suspect]
     Route: 048
  3. ALBUTEROL INHALER [Concomitant]
  4. NORVASC [Concomitant]
  5. CLONIDINE [Concomitant]
  6. ANTIBIOTICS [Concomitant]
  7. NIMODIPINE [Concomitant]
  8. YASMIN [Suspect]
     Route: 048
     Dates: start: 20070323
  9. TRAMADOL HYDROCHLORIDE [Concomitant]
  10. HYDRALAZINE HCL [Concomitant]
     Indication: BLOOD PRESSURE INCREASED
     Route: 042
     Dates: start: 20090901
  11. ADVAIR DISKUS 100/50 [Concomitant]
  12. HYDROCHLOROTHIAZIDE [Concomitant]
  13. AMITRIPTYLINE HCL [Concomitant]
  14. METFORMIN HCL [Concomitant]
  15. TOPROL-XL [Concomitant]
  16. LISINOPRIL [Concomitant]

REACTIONS (6)
  - NAUSEA [None]
  - INTRACRANIAL ANEURYSM [None]
  - PAIN [None]
  - HEADACHE [None]
  - SUBARACHNOID HAEMORRHAGE [None]
  - HYPERTENSION [None]
